FAERS Safety Report 15642693 (Version 1)
Quarter: 2018Q4

REPORT INFORMATION
  Report Type: Report from Study
  Country: VN (occurrence: VN)
  Receive Date: 20181121
  Receipt Date: 20181121
  Transmission Date: 20190205
  Serious: Yes (Other)
  Sender: FDA-Public Use
  Company Number: VN-ROCHE-2214392

PATIENT

DRUGS (1)
  1. RITUXIMAB. [Suspect]
     Active Substance: RITUXIMAB
     Indication: NON-HODGKIN^S LYMPHOMA
     Route: 065

REACTIONS (9)
  - Anaemia [Recovered/Resolved]
  - Nasal congestion [Recovered/Resolved]
  - Myocardial ischaemia [Recovered/Resolved]
  - Neutropenia [Recovered/Resolved]
  - Platelet count decreased [Recovered/Resolved]
  - Nervous system disorder [Recovered/Resolved]
  - Oropharyngeal pain [Recovered/Resolved]
  - Hypertension [Recovered/Resolved]
  - Dyspnoea [Recovered/Resolved]
